FAERS Safety Report 23453468 (Version 2)
Quarter: 2024Q1

REPORT INFORMATION
  Report Type: Spontaneous
  Country: KR (occurrence: KR)
  Receive Date: 20240129
  Receipt Date: 20240130
  Transmission Date: 20240410
  Serious: Yes (Other)
  Sender: FDA-Public Use
  Company Number: KR-009507513-2401KOR015191

PATIENT
  Age: 6 Decade
  Sex: Female

DRUGS (7)
  1. PEMBROLIZUMAB [Suspect]
     Active Substance: PEMBROLIZUMAB
     Dosage: UNK
     Dates: start: 202212, end: 202306
  2. PEMBROLIZUMAB [Suspect]
     Active Substance: PEMBROLIZUMAB
     Dosage: UNK
     Dates: start: 202309
  3. PACLITAXEL [Suspect]
     Active Substance: PACLITAXEL
     Indication: Triple negative breast cancer
     Dosage: UNK
     Dates: start: 202212, end: 202306
  4. PACLITAXEL [Suspect]
     Active Substance: PACLITAXEL
     Indication: Invasive ductal breast carcinoma
  5. CARBOPLATIN [Suspect]
     Active Substance: CARBOPLATIN
     Indication: Triple negative breast cancer
     Dosage: UNK
     Dates: start: 202212, end: 202306
  6. CARBOPLATIN [Suspect]
     Active Substance: CARBOPLATIN
     Indication: Invasive ductal breast carcinoma
  7. DOXORUBICIN [Suspect]
     Active Substance: DOXORUBICIN
     Dosage: UNK

REACTIONS (3)
  - Primary adrenal insufficiency [Unknown]
  - Pneumonia [Unknown]
  - Tuberculosis [Unknown]

NARRATIVE: CASE EVENT DATE: 20231207
